FAERS Safety Report 17517121 (Version 1)
Quarter: 2020Q1

REPORT INFORMATION
  Report Type: Spontaneous
  Country: JP (occurrence: JP)
  Receive Date: 20200309
  Receipt Date: 20200309
  Transmission Date: 20200409
  Serious: Yes (Hospitalization)
  Sender: FDA-Public Use
  Company Number: JP-009507513-2003JPN001671

PATIENT
  Age: 79 Year
  Sex: Female

DRUGS (1)
  1. BONALON [Suspect]
     Active Substance: ALENDRONATE SODIUM
     Dosage: 35 MILLIGRAM PER WEEK
     Route: 048

REACTIONS (2)
  - Haematemesis [Unknown]
  - Gastrooesophageal reflux disease [Unknown]

NARRATIVE: CASE EVENT DATE: 20200226
